FAERS Safety Report 6516681-2 (Version None)
Quarter: 2009Q4

REPORT INFORMATION
  Report Type: 
  Country: None (occurrence: None)
  Receive Date: 20091223
  Receipt Date: 20091124
  Transmission Date: 20100525
  Serious: No
  Sender: FDA-Public Use
  Company Number: US-BAYER-200917179BCC

PATIENT
  Age: 85 Year
  Sex: Female
  Weight: 75 kg

DRUGS (8)
  1. ALEVE (CAPLET) [Suspect]
     Indication: PAIN IN EXTREMITY
     Route: 048
  2. ALEVE (CAPLET) [Suspect]
     Dosage: TOTAL DAILY DOSE: 440 MG  UNIT DOSE: 220 MG
     Route: 048
     Dates: start: 20091101
  3. LOPRESSOR [Concomitant]
     Route: 065
  4. LISINOPRIL [Concomitant]
     Route: 065
  5. FUROSEMIDE [Concomitant]
     Route: 065
  6. PEPCID AC [Concomitant]
     Route: 065
  7. SUNDOWN MAGNESIUM [Concomitant]
     Route: 065
  8. SUNDOWN POTASSIUM [Concomitant]
     Route: 065

REACTIONS (2)
  - FOREIGN BODY [None]
  - REGURGITATION [None]
